FAERS Safety Report 20807304 (Version 2)
Quarter: 2022Q2

REPORT INFORMATION
  Report Type: Spontaneous
  Country: US (occurrence: US)
  Receive Date: 20220510
  Receipt Date: 20220519
  Transmission Date: 20220721
  Serious: Yes (Hospitalization, Other)
  Sender: FDA-Public Use
  Company Number: US-NOVARTISPH-NVSC2022US103075

PATIENT
  Sex: Male
  Weight: 6.25 kg

DRUGS (2)
  1. CARBOPLATIN [Suspect]
     Active Substance: CARBOPLATIN
     Indication: Astrocytoma
     Dosage: UNK
     Route: 065
  2. VINCRISTINE [Suspect]
     Active Substance: VINCRISTINE
     Indication: Astrocytoma
     Dosage: UNK
     Route: 065

REACTIONS (4)
  - Seizure [Unknown]
  - Malignant neoplasm progression [Unknown]
  - Astrocytoma [Unknown]
  - Product use in unapproved indication [Unknown]
